FAERS Safety Report 5422455-6 (Version None)
Quarter: 2007Q3

REPORT INFORMATION
  Report Type: 
  Country: None (occurrence: None)
  Receive Date: 20070822
  Receipt Date: 20070817
  Transmission Date: 20080115
  Serious: Yes (Hospitalization)
  Sender: FDA-Public Use
  Company Number: IT-ASTRAZENECA-2007SE04462

PATIENT
  Sex: Female

DRUGS (2)
  1. ROSUVASTATIN [Suspect]
  2. RAMIPRIL [Suspect]

REACTIONS (2)
  - DERMATITIS BULLOUS [None]
  - PRURITUS [None]
